FAERS Safety Report 15021861 (Version 2)
Quarter: 2018Q2

REPORT INFORMATION
  Report Type: Spontaneous
  Country: US (occurrence: US)
  Receive Date: 20180618
  Receipt Date: 20180628
  Transmission Date: 20180711
  Serious: No
  Sender: FDA-Public Use
  Company Number: US-APOTEX-2017AP020260

PATIENT
  Sex: Female

DRUGS (1)
  1. ANASTROZOLE. [Suspect]
     Active Substance: ANASTROZOLE
     Indication: OESTROGEN THERAPY
     Dosage: UNK UNK, Q.AM
     Route: 048

REACTIONS (2)
  - Product taste abnormal [Unknown]
  - Arthralgia [Recovering/Resolving]
